FAERS Safety Report 6210844-1 (Version None)
Quarter: 2009Q2

REPORT INFORMATION
  Report Type: 
  Country: None (occurrence: None)
  Receive Date: 20090601
  Receipt Date: 20090528
  Transmission Date: 20091009
  Serious: Yes (Death)
  Sender: FDA-Public Use
  Company Number: PHHY2009JP14642

PATIENT
  Sex: Male
  Weight: 66 kg

DRUGS (1)
  1. DIOVAN HCT [Suspect]
     Indication: HYPERTENSION
     Dosage: 1 DF
     Route: 048
     Dates: start: 20090331

REACTIONS (1)
  - CARDIAC FAILURE ACUTE [None]
